FAERS Safety Report 9369794 (Version 1)
Quarter: 2013Q2

REPORT INFORMATION
  Report Type: Spontaneous
  Country: FR (occurrence: FR)
  Receive Date: 20130626
  Receipt Date: 20130626
  Transmission Date: 20140414
  Serious: Yes (Other)
  Sender: FDA-Public Use
  Company Number: FR-JNJFOC-20130611143

PATIENT
  Sex: Female

DRUGS (4)
  1. DOXORUBICIN HYDROCHLORIDE [Suspect]
     Indication: BREAST CANCER METASTATIC
     Dosage: ON DAY 1
     Route: 042
  2. TAXOTERE [Suspect]
     Indication: BREAST CANCER METASTATIC
     Dosage: ON DAY 2
     Route: 042
  3. CORTICOSTEROIDS [Concomitant]
     Indication: PREMEDICATION
     Route: 065
  4. PYRIDOXIN [Concomitant]
     Indication: PROPHYLAXIS
     Route: 065

REACTIONS (1)
  - Pathological fracture [Unknown]
